FAERS Safety Report 7363952-6 (Version None)
Quarter: 2011Q1

REPORT INFORMATION
  Report Type: 
  Country: None (occurrence: None)
  Receive Date: 20110321
  Receipt Date: 20110316
  Transmission Date: 20110831
  Serious: Yes (Hospitalization)
  Sender: FDA-Public Use
  Company Number: FR-ROCHE-765921

PATIENT
  Sex: Male

DRUGS (8)
  1. BACTRIM [Concomitant]
  2. MEDIATENSYL [Concomitant]
     Dosage: MEDIATENSYL 60.
  3. OMEPRAZOLE [Concomitant]
  4. NEORAL [Concomitant]
  5. CELLCEPT [Concomitant]
  6. ROVALCYTE [Suspect]
     Route: 065
     Dates: start: 20101122
  7. BISOPROLOL [Concomitant]
  8. ELISOR [Concomitant]
     Dosage: ELISOR 20.

REACTIONS (2)
  - RENAL FAILURE [None]
  - RENAL TUBULAR NECROSIS [None]
